FAERS Safety Report 6029710-X (Version None)
Quarter: 2009Q1

REPORT INFORMATION
  Report Type: 
  Country: None (occurrence: None)
  Receive Date: 20090107
  Receipt Date: 20081226
  Transmission Date: 20090719
  Serious: Yes (Other)
  Sender: FDA-Public Use
  Company Number: ES-PFIZER INC-2009151802

PATIENT

DRUGS (4)
  1. ZYVOXID [Suspect]
     Indication: DEVICE RELATED INFECTION
     Dosage: 600 MG, UNK
     Route: 048
     Dates: start: 20081106, end: 20081110
  2. CIPROFLOXACIN HYDROCHLORIDE [Interacting]
     Dosage: UNK
     Route: 048
     Dates: start: 20080101, end: 20080101
  3. VANCOMYCIN [Interacting]
     Dosage: UNK
     Dates: start: 20080101, end: 20080101
  4. CLOXACILLIN SODIUM [Interacting]
     Dosage: UNK
     Dates: start: 20080101, end: 20080101

REACTIONS (2)
  - DRUG INTERACTION [None]
  - MUCOCUTANEOUS CANDIDIASIS [None]
